FAERS Safety Report 11885738 (Version 1)
Quarter: 2016Q1

REPORT INFORMATION
  Report Type: Spontaneous
  Country: US (occurrence: US)
  Receive Date: 20160104
  Receipt Date: 20160104
  Transmission Date: 20160526
  Serious: No
  Sender: FDA-Public Use
  Company Number: ALCN2015US007921

PATIENT
  Age: 59 Year
  Sex: Female

DRUGS (1)
  1. SYSTANE GEL DROPS ANYTIME PROTECTION [Suspect]
     Active Substance: POLYETHYLENE GLYCOL 400
     Indication: DRY EYE
     Dosage: 2 GTT, QHS
     Route: 047
     Dates: start: 20151129, end: 20151213

REACTIONS (2)
  - Ear disorder [Recovered/Resolved]
  - Dizziness [Recovered/Resolved]

NARRATIVE: CASE EVENT DATE: 20151129
